FAERS Safety Report 9252604 (Version 1)
Quarter: 2013Q2

REPORT INFORMATION
  Report Type: Spontaneous
  Country: FR (occurrence: FR)
  Receive Date: 20130424
  Receipt Date: 20130424
  Transmission Date: 20140414
  Serious: Yes (Hospitalization)
  Sender: FDA-Public Use
  Company Number: FR-ASTRAZENECA-2013SE25972

PATIENT
  Age: 44 Year
  Sex: Male
  Weight: 89 kg

DRUGS (6)
  1. XEROQUEL [Suspect]
     Indication: SCHIZOPHRENIA
     Route: 048
     Dates: start: 201303, end: 20130404
  2. LOXAPAC [Concomitant]
     Route: 048
  3. LOXAPAC [Concomitant]
     Dosage: DOSE INCREASED
     Route: 048
  4. LEPTICUR [Concomitant]
     Route: 048
  5. DEPAKOTE [Concomitant]
  6. DEPAKOTE [Concomitant]
     Dosage: DOSE INCREASED

REACTIONS (1)
  - Pancreatitis acute [Recovering/Resolving]
